FAERS Safety Report 6429091-3 (Version None)
Quarter: 2009Q4

REPORT INFORMATION
  Report Type: 
  Country: None (occurrence: None)
  Receive Date: 20091030
  Receipt Date: 20090729
  Transmission Date: 20100525
  Serious: Yes (Hospitalization)
  Sender: FDA-Public Use
  Company Number: 2009SP017405

PATIENT
  Age: 29 Year
  Sex: Female
  Weight: 106.5953 kg

DRUGS (4)
  1. NUVARING [Suspect]
     Indication: CONTRACEPTION
     Dosage: 1 DF; QM; VAG
     Route: 067
     Dates: start: 20050801, end: 20051101
  2. SYNTHROID [Concomitant]
  3. ADVIL [Concomitant]
  4. ALEVE [Concomitant]

REACTIONS (4)
  - DEEP VEIN THROMBOSIS [None]
  - HEADACHE [None]
  - PAIN [None]
  - PULMONARY EMBOLISM [None]
